FAERS Safety Report 6135746-0 (Version None)
Quarter: 2009Q1

REPORT INFORMATION
  Report Type: 
  Country: None (occurrence: None)
  Receive Date: 20090327
  Receipt Date: 20090323
  Transmission Date: 20090719
  Serious: Yes (Death, Hospitalization, Other)
  Sender: FDA-Public Use
  Company Number: PHHY2009BG11192

PATIENT
  Sex: Male

DRUGS (11)
  1. TOBI [Suspect]
     Indication: CYSTIC FIBROSIS
     Dosage: 300 MG, BID
     Dates: start: 20080401
  2. MERONEM [Concomitant]
  3. CEFTRIAXONE [Concomitant]
  4. AMIKACIN [Concomitant]
  5. SULPERAZON [Concomitant]
  6. KLACID [Concomitant]
  7. OXYGEN [Concomitant]
  8. PULMOZYME [Concomitant]
  9. CREON [Concomitant]
     Route: 048
  10. FUROSEMIDE [Concomitant]
     Route: 048
  11. VENTOLIN [Concomitant]

REACTIONS (9)
  - ALTERED STATE OF CONSCIOUSNESS [None]
  - CARDIAC FAILURE [None]
  - CONFUSIONAL STATE [None]
  - COUGH [None]
  - DRUG HYPERSENSITIVITY [None]
  - DYSPNOEA [None]
  - GENERAL PHYSICAL HEALTH DETERIORATION [None]
  - OEDEMA PERIPHERAL [None]
  - RESPIRATORY FAILURE [None]
